FAERS Safety Report 8035651-9 (Version None)
Quarter: 2011Q4

REPORT INFORMATION
  Report Type: 
  Country: None (occurrence: None)
  Receive Date: 20111222
  Receipt Date: 20111209
  Transmission Date: 20120403
  Serious: Yes (Hospitalization)
  Sender: FDA-Public Use
  Company Number: DSA_48390_2011

PATIENT
  Age: 16 Year
  Sex: Female
  Weight: 64 kg

DRUGS (4)
  1. ENALAPRIL MALEATE [Suspect]
     Indication: PRODUCT USED FOR UNKNOWN INDICATION
     Dosage: 0.8 MG/KG, FREQUENCY UNKNOWN, ORAL
     Route: 048
  2. LOSARTAN POTASSIUM AND HYDROCHLOROTHIAZIDE [Suspect]
     Indication: PRODUCT USED FOR UNKNOWN INDICATION
     Dosage: 0.5 MG/KG, FREQUENCY UNKNOWN, ORAL
     Route: 048
  3. RASILEZ (RASILEZ - ALISKIREN FUMARATE) [Suspect]
     Indication: PRODUCT USED FOR UNKNOWN INDICATION
     Dosage: 2.4 MG/KG (NOT SPECIFIED), QD, DAILY
  4. SIMVASTATIN [Concomitant]

REACTIONS (2)
  - RENAL IMPAIRMENT [None]
  - HYPERKALAEMIA [None]
